FAERS Safety Report 21764591 (Version 1)
Quarter: 2022Q4

REPORT INFORMATION
  Report Type: Report from Study
  Country: US (occurrence: US)
  Receive Date: 20221222
  Receipt Date: 20221222
  Transmission Date: 20230113
  Serious: Yes (Other)
  Sender: FDA-Public Use
  Company Number: US-ABBVIE-4245254

PATIENT
  Sex: Male

DRUGS (1)
  1. VENCLEXTA [Suspect]
     Active Substance: VENETOCLAX
     Indication: Chronic lymphocytic leukaemia
     Route: 048
     Dates: start: 201912

REACTIONS (7)
  - Leukaemia [Unknown]
  - Renal disorder [Unknown]
  - Muscle spasms [Unknown]
  - Constipation [Unknown]
  - Illness [Unknown]
  - Lymphadenopathy [Unknown]
  - Ulcer [Unknown]
